FAERS Safety Report 14497392 (Version 1)
Quarter: 2018Q1

REPORT INFORMATION
  Report Type: Spontaneous
  Country: GB (occurrence: GB)
  Receive Date: 20180207
  Receipt Date: 20180207
  Transmission Date: 20180509
  Serious: Yes (Other)
  Sender: FDA-Public Use
  Company Number: GB-RECORDATI RARE DISEASES INC.-GB-R13005-18-00023

PATIENT
  Age: 47 Year
  Sex: Female

DRUGS (14)
  1. ETOPOSIDE. [Suspect]
     Active Substance: ETOPOSIDE
     Route: 065
  2. CISPLATIN. [Suspect]
     Active Substance: CISPLATIN
     Route: 065
  3. ETOPOSIDE. [Suspect]
     Active Substance: ETOPOSIDE
     Route: 065
  4. ETOPOSIDE. [Suspect]
     Active Substance: ETOPOSIDE
     Route: 065
  5. CISPLATIN. [Suspect]
     Active Substance: CISPLATIN
     Indication: GESTATIONAL TROPHOBLASTIC TUMOUR
     Route: 065
  6. CISPLATIN. [Suspect]
     Active Substance: CISPLATIN
     Route: 065
  7. CISPLATIN. [Suspect]
     Active Substance: CISPLATIN
     Route: 065
  8. ETOPOSIDE. [Suspect]
     Active Substance: ETOPOSIDE
     Indication: GESTATIONAL TROPHOBLASTIC TUMOUR
     Route: 065
  9. ETOPOSIDE. [Suspect]
     Active Substance: ETOPOSIDE
     Route: 065
  10. METHOTREXATE. [Suspect]
     Active Substance: METHOTREXATE
     Route: 037
  11. DACTINOMYCIN [Suspect]
     Active Substance: DACTINOMYCIN
     Indication: GESTATIONAL TROPHOBLASTIC TUMOUR
     Route: 065
  12. PEMBROLIZUMAB. [Suspect]
     Active Substance: PEMBROLIZUMAB
     Indication: GESTATIONAL TROPHOBLASTIC TUMOUR
     Route: 065
  13. PACLITAXEL. [Suspect]
     Active Substance: PACLITAXEL
     Indication: GESTATIONAL TROPHOBLASTIC TUMOUR
     Route: 065
  14. METHOTREXATE. [Suspect]
     Active Substance: METHOTREXATE
     Indication: GESTATIONAL TROPHOBLASTIC TUMOUR
     Route: 065

REACTIONS (3)
  - Metastases to central nervous system [Recovered/Resolved]
  - Disease progression [Recovered/Resolved]
  - Neuropathy peripheral [Unknown]
